FAERS Safety Report 24771152 (Version 1)
Quarter: 2024Q4

REPORT INFORMATION
  Report Type: Spontaneous
  Country: CO (occurrence: CO)
  Receive Date: 20241224
  Receipt Date: 20241224
  Transmission Date: 20250114
  Serious: Yes (Death, Other)
  Sender: AMGEN
  Company Number: CO-AMGEN-COLSP2024249938

PATIENT

DRUGS (4)
  1. FILGRASTIM [Suspect]
     Active Substance: FILGRASTIM
     Indication: Product used for unknown indication
     Dosage: UNK, BEGINNING ON DAY + 6
     Route: 065
  2. CYCLOPHOSPHAMIDE [Concomitant]
     Active Substance: CYCLOPHOSPHAMIDE
     Indication: Acute leukaemia
     Dosage: 50 MILLIGRAM/KILOGRAM, QD,  ON DAY + 3 AND DAY + 4
  3. CYCLOSPORINE [Concomitant]
     Active Substance: CYCLOSPORINE
     Indication: Acute leukaemia
     Dosage: UNK, STARTING ON DAY + 7
  4. MYCOPHENOLIC ACID [Concomitant]
     Active Substance: MYCOPHENOLIC ACID
     Indication: Acute leukaemia
     Dosage: UNK, STARTING ON DAY + 7

REACTIONS (1)
  - Leukaemia recurrent [Fatal]
